FAERS Safety Report 8939866 (Version 2)
Quarter: 2013Q2

REPORT INFORMATION
  Report Type: Spontaneous
  Country: US (occurrence: US)
  Receive Date: 20121203
  Receipt Date: 20130401
  Transmission Date: 20140414
  Serious: Yes (Hospitalization)
  Sender: FDA-Public Use
  Company Number: US-009507513-1211USA012814

PATIENT
  Sex: Male

DRUGS (1)
  1. DULERA [Suspect]
     Route: 055

REACTIONS (1)
  - Hypertensive crisis [Recovering/Resolving]
